FAERS Safety Report 23294899 (Version 1)
Quarter: 2023Q4

REPORT INFORMATION
  Report Type: Report from Study
  Country: US (occurrence: US)
  Receive Date: 20231213
  Receipt Date: 20231213
  Transmission Date: 20240110
  Serious: Yes (Other)
  Sender: FDA-Public Use
  Company Number: US-ABBVIE-5535827

PATIENT
  Sex: Female

DRUGS (3)
  1. SKYRIZI [Suspect]
     Active Substance: RISANKIZUMAB-RZAA
     Indication: Psoriatic arthropathy
     Dosage: 150 MG PEN UNDER THE SKIN WEEK 0 ?150MG/ML
     Route: 058
     Dates: start: 20230808, end: 20230808
  2. SKYRIZI [Suspect]
     Active Substance: RISANKIZUMAB-RZAA
     Dosage: 150 MG PEN UNDER THE SKIN WEEK 4?150MG/ML
     Route: 058
     Dates: start: 202309, end: 202309
  3. SKYRIZI [Suspect]
     Active Substance: RISANKIZUMAB-RZAA
     Dosage: 150 MG PEN UNDER THE SKIN WEEK 12?150MG/ML
     Route: 058
     Dates: start: 20231128

REACTIONS (3)
  - Therapeutic nerve ablation [Unknown]
  - Pain [Unknown]
  - Joint range of motion decreased [Unknown]

NARRATIVE: CASE EVENT DATE: 20230101
